FAERS Safety Report 12788775 (Version 1)
Quarter: 2016Q3

REPORT INFORMATION
  Report Type: Spontaneous
  Country: DE (occurrence: DE)
  Receive Date: 20160928
  Receipt Date: 20160928
  Transmission Date: 20161109
  Serious: Yes (Death, Hospitalization)
  Sender: FDA-Public Use
  Company Number: DE-BIOGEN-2014BI004095

PATIENT
  Sex: Male

DRUGS (1)
  1. TYSABRI [Suspect]
     Active Substance: NATALIZUMAB
     Indication: MULTIPLE SCLEROSIS
     Route: 042
     Dates: start: 20081210, end: 201308

REACTIONS (4)
  - Progressive multifocal leukoencephalopathy [Unknown]
  - Sinusitis [Unknown]
  - Respiratory failure [Fatal]
  - Pneumonia aspiration [Unknown]
